FAERS Safety Report 22280919 (Version 1)
Quarter: 2023Q2

REPORT INFORMATION
  Report Type: Spontaneous
  Country: HU (occurrence: HU)
  Receive Date: 20230503
  Receipt Date: 20230503
  Transmission Date: 20230722
  Serious: Yes (Other)
  Sender: FDA-Public Use
  Company Number: ALC2023HU002152

PATIENT

DRUGS (4)
  1. CYCLOPENTOLATE [Suspect]
     Active Substance: CYCLOPENTOLATE
     Indication: Chorioretinitis
     Dosage: UNK
     Route: 065
  2. DEXAMETHASONE [Suspect]
     Active Substance: DEXAMETHASONE
     Indication: Chorioretinitis
     Dosage: UNK
     Route: 065
  3. METHYLPREDNISOLONE [Suspect]
     Active Substance: METHYLPREDNISOLONE
     Indication: Eye infection toxoplasmal
     Dosage: SYSTEMIC METHYLPREDNISOLONE WAS GIVEN AS PULSE THERAPY WITHOUT ANTIMICROBIAL PROTECTION DOSE OF CORT
     Route: 065
  4. METHYLPREDNISOLONE [Suspect]
     Active Substance: METHYLPREDNISOLONE
     Dosage: SYSTEMIC METHYLPREDNISOLONE WAS GIVEN AS PULSE THERAPY WITHOUT ANTIMICROBIAL PROTECTION DOSE OF CORT
     Route: 048

REACTIONS (7)
  - Faeces discoloured [Unknown]
  - Gastric ulcer [Unknown]
  - Oesophageal ulcer [Unknown]
  - Product use issue [Unknown]
  - Gastrooesophageal reflux disease [Unknown]
  - Abdominal discomfort [Unknown]
  - Duodenal ulcer [Unknown]
